FAERS Safety Report 8238441-7 (Version None)
Quarter: 2012Q1

REPORT INFORMATION
  Report Type: 
  Country: None (occurrence: None)
  Receive Date: 20120309
  Receipt Date: 20100510
  Transmission Date: 20120608
  Serious: No
  Sender: FDA-Public Use
  Company Number: PHEH2010US01100

PATIENT
  Age: 50 Year
  Sex: Female
  Weight: 176.4 kg

DRUGS (9)
  1. LEVEMIR [Concomitant]
  2. METFORMIN HCL [Concomitant]
  3. LISINOPRIL [Concomitant]
  4. PRAVASTATIN [Concomitant]
  5. ASPIRIN [Concomitant]
  6. EXTAVIA [Suspect]
     Indication: MULTIPLE SCLEROSIS
     Dosage: 0.25 MG, QOD, SUBCUTANEOUS
     Route: 058
     Dates: start: 20091120, end: 20100203
  7. EXTAVIA [Suspect]
     Indication: MULTIPLE SCLEROSIS
     Dosage: 0.25 MG, QOD, SUBCUTANEOUS
     Route: 058
     Dates: end: 20100507
  8. GLUCOTRIOL (GLIPIZIDE) [Concomitant]
  9. LASIX 40 (FUROSEMIDE) [Concomitant]

REACTIONS (5)
  - BRONCHITIS [None]
  - COUGH [None]
  - INJECTION SITE REACTION [None]
  - GENERALISED ERYTHEMA [None]
  - PAIN OF SKIN [None]
